FAERS Safety Report 16179465 (Version 1)
Quarter: 2019Q2

REPORT INFORMATION
  Report Type: Spontaneous
  Country: JP (occurrence: JP)
  Receive Date: 20190410
  Receipt Date: 20190410
  Transmission Date: 20190711
  Serious: Yes (Hospitalization)
  Sender: FDA-Public Use
  Company Number: JP-FERRINGPH-2019FE01940

PATIENT

DRUGS (1)
  1. MINIRINMELT [Suspect]
     Active Substance: DESMOPRESSIN ACETATE
     Indication: DIABETES INSIPIDUS
     Dosage: 90 ?G, DAILY (1 TABLET IN THE MORNING, 0.5 TABLET AT NIGHT)
     Route: 048

REACTIONS (2)
  - Liver disorder [Unknown]
  - Wrong technique in product usage process [Unknown]
